FAERS Safety Report 16317121 (Version 5)
Quarter: 2020Q2

REPORT INFORMATION
  Report Type: Spontaneous
  Country: US (occurrence: US)
  Receive Date: 20190515
  Receipt Date: 20200511
  Transmission Date: 20200713
  Serious: No
  Sender: FDA-Public Use
  Company Number: US-SA-2019SA130724

PATIENT
  Age: 57 Year
  Sex: Female

DRUGS (3)
  1. DUPIXENT [Suspect]
     Active Substance: DUPILUMAB
     Dosage: 300 MG, QOW
     Route: 058
     Dates: start: 20190109
  2. DUPIXENT [Suspect]
     Active Substance: DUPILUMAB
     Indication: ASTHMA
     Dosage: UNK
     Route: 058
     Dates: start: 201812
  3. DULOXETINE. [Concomitant]
     Active Substance: DULOXETINE

REACTIONS (6)
  - Fibromyalgia [Unknown]
  - Dysphonia [Unknown]
  - Influenza [Unknown]
  - Nasopharyngitis [Unknown]
  - Injection site pain [Unknown]
  - Injection site pain [Unknown]

NARRATIVE: CASE EVENT DATE: 201812
